FAERS Safety Report 8780859 (Version 1)
Quarter: 2012Q4

REPORT INFORMATION
  Report Type: 
  Country: US (occurrence: US)
  Receive Date: 20120913
  Receipt Date: 20120913
  Transmission Date: 20130627
  Serious: No
  Sender: FDA-Public Use
  Company Number: US-VERTEX PHARMACEUTICAL INC.-AE-2012-008252

PATIENT
  Sex: Male
  Weight: 75.91 kg

DRUGS (9)
  1. INCIVEK [Suspect]
     Indication: HEPATITIS C
     Route: 048
     Dates: start: 20120502
  2. PEGASYS [Concomitant]
     Indication: HEPATITIS C
     Route: 058
     Dates: start: 20120502
  3. RIBASPHERE [Concomitant]
     Indication: HEPATITIS C
     Route: 048
     Dates: start: 20120502
  4. VITAMIN D [Concomitant]
     Route: 048
  5. MULTIVITAMIN [Concomitant]
     Route: 048
  6. VITAMIN C [Concomitant]
     Route: 048
  7. B COMPLEX [Concomitant]
     Route: 048
  8. MILK THISTLE [Concomitant]
  9. FISH OIL [Concomitant]
     Route: 048

REACTIONS (1)
  - Depressed mood [Unknown]
